FAERS Safety Report 16968090 (Version 1)
Quarter: 2019Q4

REPORT INFORMATION
  Report Type: Spontaneous
  Country: CA (occurrence: CA)
  Receive Date: 20191028
  Receipt Date: 20191028
  Transmission Date: 20200122
  Serious: Yes (Other)
  Sender: FDA-Public Use
  Company Number: CA-UNITED THERAPEUTICS-UNT-2019-017922

PATIENT
  Age: 64 Year
  Sex: Female

DRUGS (1)
  1. REMODULIN [Suspect]
     Active Substance: TREPROSTINIL
     Indication: PULMONARY ARTERIAL HYPERTENSION
     Dosage: 0.036 ML/HR, CONTINUING
     Route: 058
     Dates: start: 20181025

REACTIONS (2)
  - Haemorrhage urinary tract [Unknown]
  - Vaginal haemorrhage [Unknown]

NARRATIVE: CASE EVENT DATE: 20191022
